FAERS Safety Report 6220992-8 (Version None)
Quarter: 2009Q2

REPORT INFORMATION
  Report Type: 
  Country: None (occurrence: None)
  Receive Date: 20090605
  Receipt Date: 20090602
  Transmission Date: 20091009
  Serious: Yes (Hospitalization, Other)
  Sender: FDA-Public Use
  Company Number: ES-WYE-G03775609

PATIENT
  Age: 42 Year
  Sex: Female

DRUGS (1)
  1. PIPERACILLIN AND TAZOBACTAM [Suspect]
     Indication: RESPIRATORY FAILURE
     Dosage: 4 DOSE 1X PER 1 DAY INTRAVENOUS
     Route: 042
     Dates: start: 20080726, end: 20080728

REACTIONS (1)
  - SKIN REACTION [None]
